FAERS Safety Report 7272070-7 (Version None)
Quarter: 2011Q1

REPORT INFORMATION
  Report Type: 
  Country: None (occurrence: None)
  Receive Date: 20110203
  Receipt Date: 20110125
  Transmission Date: 20110831
  Serious: Yes (Death, Hospitalization, Other)
  Sender: FDA-Public Use
  Company Number: FR-NOVOPROD-319441

PATIENT
  Age: 55 Year
  Sex: Female
  Weight: 60 kg

DRUGS (18)
  1. NOVOSEVEN [Suspect]
     Indication: HAEMORRHAGE
     Dosage: 5 MG, QD
     Route: 042
     Dates: start: 20101030, end: 20101030
  2. RED BLOOD CELLS [Concomitant]
     Dosage: 2 U, QD
     Dates: start: 20101021, end: 20101021
  3. RED BLOOD CELLS [Concomitant]
     Dosage: 4 U, QD
     Dates: start: 20101028, end: 20101028
  4. RED BLOOD CELLS [Concomitant]
     Dosage: 7 U, SINGLE
     Dates: start: 20101029, end: 20101029
  5. RED BLOOD CELLS [Concomitant]
     Dosage: 15 U, QD
     Dates: start: 20101029, end: 20101030
  6. FRESH FROZEN PLASMA [Concomitant]
     Dosage: 2 U, QD
     Dates: start: 20101031, end: 20101031
  7. RED BLOOD CELLS [Concomitant]
     Dosage: 1 U, QD
     Dates: start: 20101020, end: 20101020
  8. FRESH FROZEN PLASMA [Concomitant]
     Dosage: 14 U, QD
     Dates: start: 20101029, end: 20101030
  9. PLATELETS, CONCENTRATED [Concomitant]
     Dosage: 2 U, QD
     Dates: start: 20101029, end: 20101030
  10. FIBRINOGEN [Concomitant]
     Dosage: 9 G, QD
     Dates: start: 20101029, end: 20101030
  11. PHENOPERIDINE [Concomitant]
     Dosage: 5000 ML, QD
     Dates: start: 20101030, end: 20101030
  12. RED BLOOD CELLS [Concomitant]
     Dosage: 4 U, QD
     Dates: start: 20101031, end: 20101031
  13. FRESH FROZEN PLASMA [Concomitant]
     Dosage: 4 U, SINGLE
     Dates: start: 20101029, end: 20101029
  14. FRESH FROZEN PLASMA [Concomitant]
     Dosage: 2 U, QD
     Dates: start: 20101101, end: 20101101
  15. EXACYL [Concomitant]
     Dosage: 6 G, QD
     Dates: start: 20101029, end: 20101030
  16. PHENOPERIDINE [Concomitant]
     Dosage: 1600 ML, QD
     Dates: start: 20101030, end: 20101030
  17. PLATELETS, CONCENTRATED [Concomitant]
     Dosage: 1 U, QD
     Dates: start: 20101031, end: 20101031
  18. ACLOTIN                            /00543201/ [Concomitant]
     Dosage: 4000 IU, QD
     Dates: start: 20101029, end: 20101030

REACTIONS (2)
  - HYDROCEPHALUS [None]
  - CEREBELLAR INFARCTION [None]
